FAERS Safety Report 8215749-2 (Version None)
Quarter: 2012Q1

REPORT INFORMATION
  Report Type: 
  Country: None (occurrence: None)
  Receive Date: 20120316
  Receipt Date: 20120312
  Transmission Date: 20120608
  Serious: Yes (Death, Other)
  Sender: FDA-Public Use
  Company Number: US-BAYER-201030068NA

PATIENT
  Sex: Male

DRUGS (2)
  1. TRASYLOL [Suspect]
     Indication: CORONARY ARTERY BYPASS
     Dosage: BILLING FOR APROTININ, 10000KIU TIMES THREE
     Route: 042
     Dates: start: 20050223
  2. CARDIOPLEGIA [Concomitant]

REACTIONS (12)
  - PAIN [None]
  - RENAL FAILURE [None]
  - DISABILITY [None]
  - DEATH [None]
  - ANHEDONIA [None]
  - RENAL INJURY [None]
  - FEAR [None]
  - DEPRESSION [None]
  - EMOTIONAL DISTRESS [None]
  - MULTI-ORGAN FAILURE [None]
  - ANXIETY [None]
  - INJURY [None]
